FAERS Safety Report 4867968-0 (Version None)
Quarter: 2005Q4

REPORT INFORMATION
  Report Type: 
  Country: None (occurrence: None)
  Receive Date: 20051227
  Receipt Date: 20051213
  Transmission Date: 20060501
  Serious: Yes (Hospitalization)
  Sender: FDA-Public Use
  Company Number: NO-JNJFOC-20051104201

PATIENT
  Age: 26 Year
  Sex: Female

DRUGS (1)
  1. RISPERDAL [Suspect]
     Indication: MENTAL RETARDATION SEVERITY UNSPECIFIED
     Dosage: 4 MG, IN 1 DAY, ORAL
     Route: 048

REACTIONS (25)
  - ABDOMINAL DISTENSION [None]
  - ABNORMAL BEHAVIOUR [None]
  - AMENORRHOEA [None]
  - BLOOD PRESSURE INCREASED [None]
  - CARDIAC FAILURE [None]
  - CARDIOMEGALY [None]
  - CHOLECYSTECTOMY [None]
  - CONGESTIVE CARDIOMYOPATHY [None]
  - DYSPNOEA [None]
  - EJECTION FRACTION DECREASED [None]
  - FLANK PAIN [None]
  - FLUID RETENTION [None]
  - HEART RATE INCREASED [None]
  - HEPATIC STEATOSIS [None]
  - HEPATOMEGALY [None]
  - INTRACARDIAC THROMBUS [None]
  - PERICARDIAL EFFUSION [None]
  - PITUITARY-DEPENDENT CUSHING'S SYNDROME [None]
  - POLLAKIURIA [None]
  - PULMONARY HYPERTENSION [None]
  - RENAL SCAN ABNORMAL [None]
  - RESPIRATORY RATE INCREASED [None]
  - TRICUSPID VALVE INCOMPETENCE [None]
  - URINARY INCONTINENCE [None]
  - VENTRICULAR TACHYCARDIA [None]
